FAERS Safety Report 4314284-1 (Version None)
Quarter: 2004Q1

REPORT INFORMATION
  Report Type: 
  Country: None (occurrence: None)
  Receive Date: 20040308
  Receipt Date: 20040224
  Transmission Date: 20041129
  Serious: Yes (Hospitalization, Other)
  Sender: FDA-Public Use
  Company Number: 163-20785-04020740

PATIENT
  Age: 72 Year
  Sex: Female
  Weight: 56 kg

DRUGS (14)
  1. THALOMID [Suspect]
     Indication: MULTIPLE MYELOMA
     Dosage: 150-200 MG, QD, ORAL
     Route: 048
     Dates: start: 20030724, end: 20040119
  2. DEXAMETHASONE [Suspect]
     Indication: MULTIPLE MYELOMA
     Dosage: 40 MG, QD, ORAL
     Route: 048
     Dates: start: 20031219, end: 20031222
  3. CYCLOPHOSPHAMIDE [Suspect]
     Indication: MULTIPLE MYELOMA
     Dosage: 650 MG, X4D, INTRAVENOUS
     Route: 042
     Dates: start: 20031219, end: 20031222
  4. ETOPOSIDE [Suspect]
     Indication: MULTIPLE MYELOMA
     Dosage: 65 NGM X4DM INTRAVENOUS
     Route: 042
     Dates: start: 29931219, end: 29931222
  5. CISPLATIN [Suspect]
     Indication: MULTIPLE MYELOMA
     Dosage: 65 MG, X 4D, INTRAVENOUS
     Route: 042
     Dates: start: 20031219, end: 20031222
  6. ACYCLOVIR [Concomitant]
  7. MAGNESIUM OXIDE (MAGNESIUM OXIDE) [Concomitant]
  8. DIGOXIN [Concomitant]
  9. MULTIVITAMIN(MULTIVITAMINS) (TABLETS) [Concomitant]
  10. ALDACTONE [Concomitant]
  11. SYNTHROID [Concomitant]
  12. FIBERCON (POLUCARBOPHIL CALCIUM) [Concomitant]
  13. IRON (IRON) [Concomitant]
  14. DILTIAZEM CD (DILTIAZEM HYDROCHLORIDE) [Concomitant]

REACTIONS (31)
  - APHASIA [None]
  - ATRIAL FIBRILLATION [None]
  - BLOOD UREA INCREASED [None]
  - CARDIAC FAILURE CONGESTIVE [None]
  - CARDIOMYOPATHY [None]
  - CATHETER RELATED INFECTION [None]
  - CD4 LYMPHOCYTES DECREASED [None]
  - COMMUNICATION DISORDER [None]
  - CONDITION AGGRAVATED [None]
  - CONFUSIONAL STATE [None]
  - DEEP VEIN THROMBOSIS [None]
  - DEHYDRATION [None]
  - DEPRESSION [None]
  - DISORIENTATION [None]
  - FEBRILE NEUTROPENIA [None]
  - GENERALISED OEDEMA [None]
  - HAEMATOCRIT DECREASED [None]
  - HAEMOGLOBIN DECREASED [None]
  - HYPERTENSION [None]
  - HYPOKALAEMIA [None]
  - HYPOMAGNESAEMIA [None]
  - HYPOTHYROIDISM [None]
  - HYPOVOLAEMIA [None]
  - LYMPHOCYTE PERCENTAGE DECREASED [None]
  - OEDEMA PERIPHERAL [None]
  - PLEURAL EFFUSION [None]
  - STAPHYLOCOCCAL INFECTION [None]
  - STARING [None]
  - STREPTOCOCCAL SEPSIS [None]
  - VIRAL UPPER RESPIRATORY TRACT INFECTION [None]
  - WEIGHT DECREASED [None]
